FAERS Safety Report 8195552-2 (Version None)
Quarter: 2012Q1

REPORT INFORMATION
  Report Type: 
  Country: None (occurrence: None)
  Receive Date: 20120308
  Receipt Date: 20120306
  Transmission Date: 20120608
  Serious: Yes (Hospitalization)
  Sender: FDA-Public Use
  Company Number: PHEH2012US005211

PATIENT
  Sex: Male
  Weight: 72.6 kg

DRUGS (5)
  1. BACLOFEN [Concomitant]
  2. OXYBUTYNIN [Concomitant]
  3. GABAPENTIN [Concomitant]
  4. FAMPRIDINE [Suspect]
     Indication: GAIT DISTURBANCE
     Dosage: 10 MG, BID
     Route: 048
     Dates: start: 20111001, end: 20111001
  5. GILENYA [Suspect]
     Indication: MULTIPLE SCLEROSIS
     Dosage: 0.5 MG, DAILY
     Route: 048
     Dates: start: 20111001, end: 20111004

REACTIONS (1)
  - CONVULSION [None]
